FAERS Safety Report 11615876 (Version 2)
Quarter: 2015Q4

REPORT INFORMATION
  Report Type: Spontaneous
  Country: JP (occurrence: JP)
  Receive Date: 20151009
  Receipt Date: 20151110
  Transmission Date: 20160304
  Serious: Yes (Other)
  Sender: FDA-Public Use
  Company Number: JP-GLAXOSMITHKLINE-JP2015JPN123218

PATIENT
  Age: 40 Year
  Sex: Female
  Weight: 63 kg

DRUGS (15)
  1. KEISHIBUKURYOGAN [Concomitant]
     Active Substance: HERBALS
  2. LAMICTAL [Suspect]
     Active Substance: LAMOTRIGINE
     Indication: EPILEPSY
     Dosage: 25 MG, QOD
     Route: 048
     Dates: start: 20150205
  3. LAMICTAL [Suspect]
     Active Substance: LAMOTRIGINE
     Dosage: 200 MG, 1D
     Route: 048
     Dates: start: 201507
  4. SHOSAIKOTO [Concomitant]
     Active Substance: HERBALS
  5. LAMICTAL [Suspect]
     Active Substance: LAMOTRIGINE
     Dosage: 25 MG, 1D
     Route: 048
  6. LAMICTAL [Suspect]
     Active Substance: LAMOTRIGINE
     Dosage: 50 MG, 1D
     Route: 048
  7. LAMICTAL [Suspect]
     Active Substance: LAMOTRIGINE
     Dosage: 25 MG, 1D
     Route: 048
  8. VALERIN [Concomitant]
     Active Substance: VALPROATE SODIUM
     Dosage: 600 MG, 1D
     Dates: start: 20150730
  9. LAMICTAL [Suspect]
     Active Substance: LAMOTRIGINE
     Dosage: 100 MG, 1D
     Route: 048
  10. LAMICTAL [Suspect]
     Active Substance: LAMOTRIGINE
     Dosage: 50 MG, 1D
     Route: 048
  11. LAMICTAL [Suspect]
     Active Substance: LAMOTRIGINE
     Dosage: 100 MG, 1D
     Route: 048
  12. LAMICTAL [Suspect]
     Active Substance: LAMOTRIGINE
     Dosage: 150 MG, 1D
     Route: 048
  13. VALERIN [Concomitant]
     Active Substance: VALPROATE SODIUM
     Indication: EPILEPSY
     Dosage: 1000 MG, 1D
  14. VALERIN [Concomitant]
     Active Substance: VALPROATE SODIUM
     Dosage: 1000 MG, 1D
     Dates: start: 20150827
  15. VALERIN [Concomitant]
     Active Substance: VALPROATE SODIUM
     Dosage: 800 MG, 1D
     Dates: start: 20150528

REACTIONS (15)
  - Eczema vesicular [Recovered/Resolved]
  - Middle insomnia [Recovering/Resolving]
  - Iron deficiency anaemia [Unknown]
  - Eczema [Recovered/Resolved]
  - Cough [Recovered/Resolved]
  - Oropharyngeal discomfort [Recovering/Resolving]
  - Oropharyngeal pain [Recovered/Resolved]
  - Productive cough [Recovered/Resolved]
  - Dizziness [Recovering/Resolving]
  - Malaise [Recovering/Resolving]
  - Pruritus [Recovered/Resolved]
  - Vomiting [Recovered/Resolved]
  - Personality change [Recovered/Resolved]
  - Chest pain [Recovering/Resolving]
  - Nausea [Recovered/Resolved]

NARRATIVE: CASE EVENT DATE: 2015
